FAERS Safety Report 5448958-6 (Version None)
Quarter: 2007Q3

REPORT INFORMATION
  Report Type: 
  Country: None (occurrence: None)
  Receive Date: 20070911
  Receipt Date: 20070905
  Transmission Date: 20080115
  Serious: Yes (Hospitalization, Other)
  Sender: FDA-Public Use
  Company Number: US-ELI_LILLY_AND_COMPANY-US200708000157

PATIENT
  Age: 58 Year
  Sex: Female

DRUGS (8)
  1. FORTEO [Suspect]
     Indication: OSTEOPOROSIS
     Dosage: 20 UG, DAILY (1/D)
     Dates: start: 20070530, end: 20070731
  2. FORTEO [Suspect]
     Dosage: 20 UG, DAILY (1/D)
     Dates: start: 20070801
  3. NEXIUM [Concomitant]
     Dosage: 40 MG, UNK
  4. ULTRAM [Concomitant]
     Dosage: 50 MG, UNK
  5. ZOLOFT [Concomitant]
     Dosage: 50 MG, UNK
  6. METOPROLOL SUCCINATE [Concomitant]
     Dosage: 100 MG, UNK
  7. NEURONTIN [Concomitant]
     Dosage: 400 MG, UNK
  8. MAXZIDE [Concomitant]
     Dosage: 25/37.5 MG

REACTIONS (1)
  - KNEE ARTHROPLASTY [None]
